FAERS Safety Report 24298401 (Version 2)
Quarter: 2024Q4

REPORT INFORMATION
  Report Type: Spontaneous
  Country: JP (occurrence: JP)
  Receive Date: 20240909
  Receipt Date: 20241016
  Transmission Date: 20250114
  Serious: Yes (Hospitalization, Other)
  Sender: PFIZER
  Company Number: JP-PFIZER INC-PV202400117429

PATIENT
  Age: 92 Year
  Sex: Female
  Weight: 44.1 kg

DRUGS (10)
  1. AZULFIDINE EN-TABS [Suspect]
     Active Substance: SULFASALAZINE
     Indication: Rheumatoid arthritis
     Dosage: 1000 MG, DAILY
     Route: 048
  2. AMLODIPINE BESYLATE [Concomitant]
     Active Substance: AMLODIPINE BESYLATE
  3. TENELIGLIPTIN [Concomitant]
     Active Substance: TENELIGLIPTIN
  4. FEBUXOSTAT [Concomitant]
     Active Substance: FEBUXOSTAT
  5. IMIDAFENACIN [Concomitant]
     Active Substance: IMIDAFENACIN
  6. BIO-THREE [Concomitant]
     Active Substance: HERBALS
  7. BROMFENAC SODIUM HYDRATE [Concomitant]
     Route: 047
  8. OLOPATADINE [OLOPATADINE HYDROCHLORIDE] [Concomitant]
  9. RYZODEG 70/30 [Concomitant]
     Active Substance: INSULIN ASPART\INSULIN DEGLUDEC
     Route: 058
  10. ATORVASTATIN CALCIUM [Concomitant]
     Active Substance: ATORVASTATIN CALCIUM

REACTIONS (3)
  - Duodenal ulcer [Recovered/Resolved]
  - Fatigue [Recovered/Resolved]
  - Vomiting [Recovered/Resolved]

NARRATIVE: CASE EVENT DATE: 20240724
